FAERS Safety Report 17951945 (Version 1)
Quarter: 2020Q2

REPORT INFORMATION
  Report Type: Spontaneous
  Country: FR (occurrence: FR)
  Receive Date: 20200626
  Receipt Date: 20200626
  Transmission Date: 20200714
  Serious: Yes (Other)
  Sender: FDA-Public Use
  Company Number: FR-BAUSCH-BL-2020-017840

PATIENT
  Age: 11 Year
  Sex: Male

DRUGS (7)
  1. HYDROCORTISONE. [Suspect]
     Active Substance: HYDROCORTISONE
     Indication: ADDISON^S DISEASE
     Route: 065
  2. HYDROCORTISONE. [Interacting]
     Active Substance: HYDROCORTISONE
     Indication: HYPOPARATHYROIDISM
     Dosage: DOSE REDUCED
     Route: 065
  3. 9-ALPHA-FLUOROCORTISOL [Suspect]
     Active Substance: FLUDROCORTISONE
     Indication: HYPOPARATHYROIDISM
     Route: 065
  4. CALCITRIOL. [Concomitant]
     Active Substance: CALCITRIOL
     Indication: HYPOPARATHYROIDISM
     Route: 065
  5. 9-ALPHA-FLUOROCORTISOL [Suspect]
     Active Substance: FLUDROCORTISONE
     Indication: ADDISON^S DISEASE
  6. CALCIUM [Concomitant]
     Active Substance: CALCIUM
     Indication: HYPOCALCAEMIA
     Route: 065
  7. LIQUORICE [Interacting]
     Active Substance: LICORICE
     Indication: ADDISON^S DISEASE
     Dosage: ATE ABOUT 300-400 G (APPROXIMATELY 600-800 MG GLYCYRRHIZIC ACID)
     Route: 048

REACTIONS (3)
  - Apparent mineralocorticoid excess [Recovered/Resolved]
  - Drug interaction [Unknown]
  - Growth retardation [Recovering/Resolving]
